FAERS Safety Report 19405140 (Version 1)
Quarter: 2021Q2

REPORT INFORMATION
  Report Type: Spontaneous
  Country: US (occurrence: US)
  Receive Date: 20210611
  Receipt Date: 20210611
  Transmission Date: 20210717
  Serious: Yes (Life-Threatening, Hospitalization)
  Sender: FDA-Public Use
  Company Number: None

PATIENT
  Age: 35 Year
  Sex: Female
  Weight: 47.97 kg

DRUGS (6)
  1. FERRLECIT [Suspect]
     Active Substance: SODIUM FERRIC GLUCONATE COMPLEX
     Indication: IRON DEFICIENCY ANAEMIA
     Dosage: ?          OTHER FREQUENCY:WEEKLY;?
     Route: 041
     Dates: start: 20210603, end: 20210603
  2. FLUCONAZOLE. [Concomitant]
     Active Substance: FLUCONAZOLE
     Dates: start: 20201202
  3. LORAZEPAM. [Concomitant]
     Active Substance: LORAZEPAM
     Dates: start: 20201102
  4. ENTOCORT EC [Concomitant]
     Active Substance: BUDESONIDE
     Dates: start: 20210322
  5. ESCITALOPRAM [Concomitant]
     Active Substance: ESCITALOPRAM OXALATE
     Dates: start: 20210309
  6. PANTOPRAZOLE [Concomitant]
     Active Substance: PANTOPRAZOLE
     Dates: start: 20201103

REACTIONS (17)
  - Peripheral swelling [None]
  - Loss of consciousness [None]
  - Infusion related reaction [None]
  - Back pain [None]
  - Dyspnoea [None]
  - Feeling abnormal [None]
  - Vomiting [None]
  - Seizure [None]
  - Constipation [None]
  - Diarrhoea [None]
  - Lethargy [None]
  - Erythema [None]
  - Nausea [None]
  - Drug intolerance [None]
  - Pallor [None]
  - Chest discomfort [None]
  - Syncope [None]

NARRATIVE: CASE EVENT DATE: 20210603
